FAERS Safety Report 5090451-7 (Version None)
Quarter: 2006Q3

REPORT INFORMATION
  Report Type: 
  Country: None (occurrence: None)
  Receive Date: 20060828
  Receipt Date: 20060508
  Transmission Date: 20061208
  Serious: No
  Sender: FDA-Public Use
  Company Number: US-GLAXOSMITHKLINE-A0604669A

PATIENT
  Age: 71 Year
  Sex: Female
  Weight: 63.6 kg

DRUGS (4)
  1. WELLBUTRIN XL [Suspect]
     Indication: DEPRESSION
     Dosage: 300MG UNKNOWN
     Route: 048
     Dates: start: 20060301
  2. DIOVAN [Concomitant]
  3. HYDROCHLOROTHIAZIDE [Concomitant]
  4. VESICARE [Concomitant]

REACTIONS (5)
  - ECZEMA [None]
  - ECZEMA ASTEATOTIC [None]
  - EXCORIATION [None]
  - NEURODERMATITIS [None]
  - PRURITUS [None]
